FAERS Safety Report 24087675 (Version 2)
Quarter: 2024Q3

REPORT INFORMATION
  Report Type: Spontaneous
  Country: JP (occurrence: JP)
  Receive Date: 20240715
  Receipt Date: 20240720
  Transmission Date: 20241016
  Serious: Yes (Death, Other)
  Sender: ABBVIE
  Company Number: JP-ABBVIE-5837963

PATIENT
  Sex: Female

DRUGS (1)
  1. ADALIMUMAB [Suspect]
     Active Substance: ADALIMUMAB\ISOPROPYL ALCOHOL
     Indication: Maternal exposure timing unspecified
     Route: 064

REACTIONS (8)
  - Endocarditis [Fatal]
  - Neonatal respiratory distress syndrome [Unknown]
  - Anaemia [Unknown]
  - Foetal exposure during pregnancy [Unknown]
  - Oedema [Unknown]
  - Pericardial effusion [Unknown]
  - Pleural effusion [Unknown]
  - Posthaemorrhagic hydrocephalus [Unknown]
